FAERS Safety Report 13085114 (Version 2)
Quarter: 2017Q1

REPORT INFORMATION
  Report Type: Report from Study
  Country: US (occurrence: US)
  Receive Date: 20170104
  Receipt Date: 20170228
  Transmission Date: 20170428
  Serious: Yes (Hospitalization, Other)
  Sender: FDA-Public Use
  Company Number: US-ARIAD-2016US007246

PATIENT
  Sex: Female

DRUGS (2)
  1. ICLUSIG [Suspect]
     Active Substance: PONATINIB
     Dosage: 30 MG, QD
     Route: 048
  2. ICLUSIG [Suspect]
     Active Substance: PONATINIB
     Indication: ACUTE LYMPHOCYTIC LEUKAEMIA
     Dosage: 45 MG, QD
     Route: 048
     Dates: start: 20160805

REACTIONS (11)
  - Activities of daily living impaired [Unknown]
  - Arthralgia [Not Recovered/Not Resolved]
  - Hypertension [Unknown]
  - Pericardial effusion [Unknown]
  - Swelling face [Unknown]
  - Serositis [Unknown]
  - Generalised oedema [Unknown]
  - Cardiomyopathy [Unknown]
  - Neutropenia [Unknown]
  - Hospitalisation [Unknown]
  - Fatigue [Unknown]
